FAERS Safety Report 10890267 (Version 1)
Quarter: 2015Q1

REPORT INFORMATION
  Report Type: Report from Study
  Country: US (occurrence: US)
  Receive Date: 20150305
  Receipt Date: 20150305
  Transmission Date: 20150721
  Serious: Yes (Other)
  Sender: FDA-Public Use
  Company Number: US-ROCHE-1546422

PATIENT

DRUGS (1)
  1. ALTEPLASE [Suspect]
     Active Substance: ALTEPLASE
     Indication: VENOUS THROMBOSIS
     Route: 065

REACTIONS (8)
  - Cholecystitis [Unknown]
  - Device occlusion [Unknown]
  - Haematuria [Unknown]
  - Heparin-induced thrombocytopenia [Unknown]
  - Pneumonia [Unknown]
  - Flank pain [Unknown]
  - Cerebrovascular accident [Unknown]
  - Acute myocardial infarction [Unknown]
